FAERS Safety Report 24272087 (Version 1)
Quarter: 2024Q3

REPORT INFORMATION
  Report Type: Spontaneous
  Country: FR (occurrence: FR)
  Receive Date: 20240902
  Receipt Date: 20240902
  Transmission Date: 20241016
  Serious: Yes (Hospitalization, Other)
  Sender: AUROBINDO
  Company Number: FR-ELI_LILLY_AND_COMPANY-FR202408006070

PATIENT
  Age: 76 Year
  Sex: Female

DRUGS (3)
  1. METFORMIN [Suspect]
     Active Substance: METFORMIN HYDROCHLORIDE
     Indication: Product used for unknown indication
     Dosage: UNK
     Route: 065
  2. TRULICITY [Suspect]
     Active Substance: DULAGLUTIDE
     Indication: Product used for unknown indication
     Dosage: 3 MILLIGRAM (3.0 MG/0.5ML, UNKNOWN)
     Route: 065
  3. TRULICITY [Suspect]
     Active Substance: DULAGLUTIDE
     Dosage: 1.5 MILLIGRAM (1.5 MG/0.5ML, UNKNOWN)
     Route: 065
     Dates: start: 2023

REACTIONS (5)
  - Skin cancer [Unknown]
  - Weight increased [Unknown]
  - Dysgeusia [Unknown]
  - Phlebitis [Unknown]
  - Infection [Unknown]

NARRATIVE: CASE EVENT DATE: 20240101
